FAERS Safety Report 6097974-2 (Version None)
Quarter: 2009Q1

REPORT INFORMATION
  Report Type: 
  Country: None (occurrence: None)
  Receive Date: 20090227
  Receipt Date: 20090223
  Transmission Date: 20090719
  Serious: Yes (Hospitalization)
  Sender: FDA-Public Use
  Company Number: GB-ASTRAZENECA-2009GB00522

PATIENT
  Age: 58 Year
  Sex: Female

DRUGS (6)
  1. QUETIAPINE MR [Suspect]
     Indication: SCHIZOPHRENIA
     Route: 048
     Dates: start: 20090215, end: 20090215
  2. QUETIAPINE MR [Suspect]
     Indication: HALLUCINATION
     Route: 048
     Dates: start: 20090215, end: 20090215
  3. STELAZINE [Concomitant]
  4. SERTRALINE [Concomitant]
  5. KEMADRINE [Concomitant]
  6. NORTRIPTAN [Concomitant]
     Indication: MIGRAINE

REACTIONS (2)
  - LOSS OF CONSCIOUSNESS [None]
  - SOMNOLENCE [None]
